FAERS Safety Report 13101324 (Version 2)
Quarter: 2017Q1

REPORT INFORMATION
  Report Type: Spontaneous
  Country: JP (occurrence: JP)
  Receive Date: 20170110
  Receipt Date: 20170215
  Transmission Date: 20170428
  Serious: Yes (Hospitalization)
  Sender: FDA-Public Use
  Company Number: JP-GILEAD-2017-0252055

PATIENT
  Age: 65 Year
  Sex: Female
  Weight: 52.2 kg

DRUGS (12)
  1. XYZAL [Concomitant]
     Active Substance: LEVOCETIRIZINE DIHYDROCHLORIDE
     Indication: ASTHMA
     Dosage: UNK
     Dates: end: 20161205
  2. MOSAPRIDE CITRATE [Concomitant]
     Active Substance: MOSAPRIDE CITRATE
     Indication: CHRONIC GASTRITIS
     Dosage: UNK
     Dates: end: 20161205
  3. HARVONI [Suspect]
     Active Substance: LEDIPASVIR\SOFOSBUVIR
     Indication: CHRONIC HEPATITIS C
     Dosage: UNK
     Route: 048
     Dates: start: 20160906, end: 20161128
  4. AMBROXOL [Concomitant]
     Active Substance: AMBROXOL
     Indication: ASTHMA
     Dosage: UNK
     Dates: end: 20161205
  5. TEPRENONE [Concomitant]
     Active Substance: TEPRENONE
     Indication: CHRONIC GASTRITIS
     Dosage: UNK
     Dates: end: 20161205
  6. SPIRIVA [Concomitant]
     Active Substance: TIOTROPIUM BROMIDE MONOHYDRATE
     Indication: ASTHMA
  7. MONTELUKAST [Concomitant]
     Active Substance: MONTELUKAST SODIUM
     Indication: ASTHMA
     Dosage: UNK
     Dates: end: 20161205
  8. AMLODIPINE [Concomitant]
     Active Substance: AMLODIPINE BESYLATE
     Indication: HYPERTENSION
     Dosage: UNK
     Dates: end: 20161205
  9. SHAKUYAKUKANZOTO [Concomitant]
     Active Substance: HERBALS
     Indication: MUSCLE SPASMS
     Dosage: UNK
     Dates: end: 20161205
  10. LANSOPRAZOLE. [Concomitant]
     Active Substance: LANSOPRAZOLE
     Indication: CHRONIC GASTRITIS
     Dosage: UNK
     Dates: end: 20161205
  11. EPL                                /01802101/ [Concomitant]
     Indication: CHRONIC HEPATITIS C
     Dosage: UNK
     Dates: end: 20161205
  12. RELVAR [Concomitant]
     Active Substance: FLUTICASONE FUROATE\VILANTEROL TRIFENATATE
     Indication: ASTHMA

REACTIONS (1)
  - Gastroenteritis eosinophilic [Recovering/Resolving]

NARRATIVE: CASE EVENT DATE: 20161220
